FAERS Safety Report 5741962-X (Version None)
Quarter: 2008Q2

REPORT INFORMATION
  Report Type: 
  Country: None (occurrence: None)
  Receive Date: 20080519
  Receipt Date: 20080509
  Transmission Date: 20081010
  Serious: Yes (Death, Other)
  Sender: FDA-Public Use
  Company Number: US-ELI_LILLY_AND_COMPANY-US200803002657

PATIENT
  Sex: Male
  Weight: 77.551 kg

DRUGS (1)
  1. ZYPREXA [Suspect]
     Dosage: 10 MG, UNK
     Dates: start: 19990101, end: 20061210

REACTIONS (8)
  - CONSTIPATION [None]
  - DIABETES MELLITUS [None]
  - DIABETIC COMA [None]
  - DIABETIC KETOACIDOSIS [None]
  - DIZZINESS [None]
  - HEADACHE [None]
  - HEART RATE INCREASED [None]
  - HYPERGLYCAEMIA [None]
